FAERS Safety Report 9698618 (Version 1)
Quarter: 2013Q4

REPORT INFORMATION
  Report Type: Spontaneous
  Country: IT (occurrence: IT)
  Receive Date: 20131120
  Receipt Date: 20131120
  Transmission Date: 20140711
  Serious: Yes (Disabling, Other)
  Sender: FDA-Public Use
  Company Number: IT-TEVA-444959ISR

PATIENT
  Age: 18 Year
  Sex: Male

DRUGS (2)
  1. VINCRISTINA TEVA ITALIA [Suspect]
     Indication: MEDULLOBLASTOMA
     Dosage: 2 MILLIGRAM DAILY;
     Route: 040
     Dates: start: 20130722, end: 20130916
  2. CARBOPLATINO AHCL [Interacting]
     Indication: MEDULLOBLASTOMA
     Dosage: 70 MG/M2 DAILY;
     Route: 040
     Dates: start: 20130722, end: 20130902

REACTIONS (3)
  - Drug interaction [Recovering/Resolving]
  - Pain in extremity [Recovering/Resolving]
  - Abasia [Recovered/Resolved with Sequelae]
